FAERS Safety Report 5470853-7 (Version None)
Quarter: 2007Q3

REPORT INFORMATION
  Report Type: 
  Country: None (occurrence: None)
  Receive Date: 20070928
  Receipt Date: 20070917
  Transmission Date: 20080115
  Serious: Yes (Hospitalization, Other)
  Sender: FDA-Public Use
  Company Number: US-ELI_LILLY_AND_COMPANY-US200709003467

PATIENT
  Age: 75 Year
  Sex: Female

DRUGS (7)
  1. CYMBALTA [Suspect]
     Indication: PAIN
     Dosage: 30 MG, UNK
     Dates: start: 20070301, end: 20070802
  2. CYMBALTA [Suspect]
     Dosage: 60 MG, UNK
     Dates: start: 20070101
  3. LORAZEPAM [Concomitant]
  4. LORTAB [Concomitant]
     Dosage: 2 D/F, EVERY 4 HRS
  5. CELEBREX [Concomitant]
     Dosage: 200 MG, UNK
  6. SYNTHROID [Concomitant]
     Dosage: 0.088 MG, UNK
  7. COUMADIN [Concomitant]
     Dosage: 5 MG, UNK

REACTIONS (7)
  - HOT FLUSH [None]
  - HYPERHIDROSIS [None]
  - INSOMNIA [None]
  - PULMONARY EMBOLISM [None]
  - SOMNOLENCE [None]
  - SURGERY [None]
  - VISION BLURRED [None]
